FAERS Safety Report 20583442 (Version 2)
Quarter: 2022Q2

REPORT INFORMATION
  Report Type: Spontaneous
  Country: JP (occurrence: JP)
  Receive Date: 20220311
  Receipt Date: 20220405
  Transmission Date: 20220721
  Serious: Yes (Death, Other)
  Sender: FDA-Public Use
  Company Number: JP-GSKJP-JP2022JPN042648

PATIENT
  Sex: Male

DRUGS (8)
  1. BOTOX [Suspect]
     Active Substance: ONABOTULINUMTOXINA
     Indication: Neurogenic bladder
     Dosage: 200 UNITS, SINGLE
     Dates: start: 20211228, end: 20211228
  2. SPIRONOLACTONE [Concomitant]
     Active Substance: SPIRONOLACTONE
     Indication: Cardiac failure
     Dosage: 50 MG
     Route: 048
     Dates: start: 202108
  3. VONOPRAZAN FUMARATE [Concomitant]
     Active Substance: VONOPRAZAN FUMARATE
     Indication: Gastrooesophageal reflux disease
     Dosage: 10 MG
     Route: 048
     Dates: start: 202108
  4. ATORVASTATIN CALCIUM [Concomitant]
     Active Substance: ATORVASTATIN CALCIUM
     Indication: Hyperlipidaemia
     Dosage: 5 MG
     Route: 048
     Dates: start: 202108
  5. FUROSEMIDE [Concomitant]
     Active Substance: FUROSEMIDE
     Indication: Cardiac failure
     Dosage: 40 MG
     Route: 048
     Dates: start: 202108
  6. CLOPIDOGREL BISULFATE [Concomitant]
     Active Substance: CLOPIDOGREL BISULFATE
     Indication: Angina pectoris
     Dosage: 75 MG
     Route: 048
     Dates: start: 202108
  7. NICORANDIL [Concomitant]
     Active Substance: NICORANDIL
     Indication: Cardiac failure
     Dosage: 5 MG, TID
  8. BAYASPIRIN PLUS C [Concomitant]
     Indication: Cardiac failure
     Dosage: 100 MG, QD

REACTIONS (3)
  - Cardiac failure acute [Fatal]
  - Loss of consciousness [Not Recovered/Not Resolved]
  - Incontinence [Unknown]

NARRATIVE: CASE EVENT DATE: 20220105
